FAERS Safety Report 6107436-1 (Version None)
Quarter: 2009Q1

REPORT INFORMATION
  Report Type: 
  Country: None (occurrence: None)
  Receive Date: 20090309
  Receipt Date: 20090226
  Transmission Date: 20090719
  Serious: Yes (Death)
  Sender: FDA-Public Use
  Company Number: US-PFIZER INC-2008156680

PATIENT
  Sex: Female
  Weight: 81.633 kg

DRUGS (13)
  1. NAPROXEN [Suspect]
     Indication: OSTEOARTHRITIS
     Dosage: 500 MG, 2X/DAY
     Route: 048
     Dates: start: 20070417, end: 20080502
  2. NAPROXEN [Suspect]
     Indication: RHEUMATOID ARTHRITIS
  3. NEXIUM [Concomitant]
     Dosage: UNK
     Route: 048
     Dates: start: 20070417, end: 20080502
  4. ACETYLSALICYLIC ACID [Concomitant]
     Dosage: UNK
     Route: 048
  5. NISOLDIPINE [Concomitant]
     Dosage: UNK
     Route: 048
  6. ATENOLOL [Concomitant]
     Dosage: UNK
     Route: 048
  7. LISINOPRIL [Concomitant]
     Dosage: UNK
     Route: 048
  8. HYDROCODONE [Concomitant]
     Dosage: UNK
     Route: 048
  9. FLUOXETINE [Concomitant]
     Dosage: UNK
     Route: 048
  10. ZOCOR [Concomitant]
     Dosage: UNK
     Route: 048
  11. HYDROCHLOROTHIAZIDE [Concomitant]
     Dosage: UNK
     Route: 048
  12. MOTRIN [Concomitant]
     Dosage: UNK
     Route: 048
     Dates: start: 20060101, end: 20070414
  13. INFLUENZA VACCINE [Concomitant]
     Dosage: UNK
     Route: 030
     Dates: start: 20071001, end: 20071001

REACTIONS (1)
  - DEATH [None]
